FAERS Safety Report 6100159-4 (Version None)
Quarter: 2009Q1

REPORT INFORMATION
  Report Type: 
  Country: None (occurrence: None)
  Receive Date: 20090302
  Receipt Date: 20090302
  Transmission Date: 20090719
  Serious: Yes (Other)
  Sender: FDA-Public Use
  Company Number: None

PATIENT
  Age: 75 Year
  Sex: Male
  Weight: 99.7913 kg

DRUGS (1)
  1. CREST PRO-HEALTH NA PROCTOR + GAMBLE [Suspect]
     Indication: DENTAL PLAQUE
     Dosage: 1 OZ 2 X DAILY DENTAL
     Route: 004
     Dates: start: 20090104, end: 20090227

REACTIONS (1)
  - TOOTH DISCOLOURATION [None]
